FAERS Safety Report 23851329 (Version 2)
Quarter: 2024Q2

REPORT INFORMATION
  Report Type: Report from Study
  Country: US (occurrence: US)
  Receive Date: 20240514
  Receipt Date: 20240524
  Transmission Date: 20240716
  Serious: No
  Sender: FDA-Public Use
  Company Number: US-AstraZeneca-CH-00619490A

PATIENT
  Sex: Female

DRUGS (1)
  1. ULTOMIRIS [Suspect]
     Active Substance: RAVULIZUMAB-CWVZ
     Indication: Product used for unknown indication
     Dosage: UNK
     Route: 065

REACTIONS (6)
  - Speech disorder [Recovering/Resolving]
  - Mastication disorder [Unknown]
  - Dysphagia [Recovering/Resolving]
  - Muscle fatigue [Unknown]
  - Dyspnoea [Unknown]
  - Eyelid ptosis [Unknown]
